FAERS Safety Report 13682204 (Version 1)
Quarter: 2017Q2

REPORT INFORMATION
  Report Type: Spontaneous
  Country: US (occurrence: US)
  Receive Date: 20170622
  Receipt Date: 20170622
  Transmission Date: 20170830
  Serious: No
  Sender: FDA-Public Use
  Company Number: None

PATIENT
  Age: 51 Year
  Sex: Male

DRUGS (1)
  1. VANCOMYCIN [Suspect]
     Active Substance: VANCOMYCIN
     Indication: INFECTION
     Dosage: 1 GM Q 24 HR IV
     Route: 042
     Dates: start: 20170617, end: 20170620

REACTIONS (2)
  - Back pain [None]
  - Tinnitus [None]

NARRATIVE: CASE EVENT DATE: 20170620
